FAERS Safety Report 18581355 (Version 1)
Quarter: 2020Q4

REPORT INFORMATION
  Report Type: Spontaneous
  Country: US (occurrence: US)
  Receive Date: 20201204
  Receipt Date: 20201204
  Transmission Date: 20210114
  Serious: No
  Sender: FDA-Public Use
  Company Number: US-TAKEDA-2020TUS052419

PATIENT
  Sex: Female
  Weight: 83.9 kg

DRUGS (26)
  1. ARALAST [Suspect]
     Active Substance: .ALPHA.1-PROTEINASE INHIBITOR HUMAN
     Indication: ALPHA-1 ANTITRYPSIN DEFICIENCY
     Dosage: 60 MILLIGRAM/KILOGRAM, 1/WEEK
     Route: 042
     Dates: start: 20070328
  2. BACTRIM [Concomitant]
     Active Substance: SULFAMETHOXAZOLE\TRIMETHOPRIM
  3. MUCINEX [Concomitant]
     Active Substance: GUAIFENESIN
  4. EPINEPHRINE. [Concomitant]
     Active Substance: EPINEPHRINE
  5. LYSINE [Concomitant]
     Active Substance: LYSINE
  6. HEPARIN [Concomitant]
     Active Substance: HEPARIN SODIUM
  7. SYMBICORT [Concomitant]
     Active Substance: BUDESONIDE\FORMOTEROL FUMARATE DIHYDRATE
  8. CALCIUM + VITAMIN D3 [Concomitant]
     Active Substance: CALCIUM\CHOLECALCIFEROL
  9. ARALAST [Suspect]
     Active Substance: .ALPHA.1-PROTEINASE INHIBITOR HUMAN
     Indication: ALPHA-1 ANTITRYPSIN DEFICIENCY
     Dosage: 60 MILLIGRAM/KILOGRAM, 1/WEEK
     Route: 042
     Dates: start: 20070328
  10. LIDOCAINE. [Concomitant]
     Active Substance: LIDOCAINE
  11. PROAIR HFA [Concomitant]
     Active Substance: ALBUTEROL SULFATE
  12. DIPHENHYDRAMINE. [Concomitant]
     Active Substance: DIPHENHYDRAMINE
  13. LMX4 [Concomitant]
     Active Substance: LIDOCAINE
  14. SPIRIVA [Concomitant]
     Active Substance: TIOTROPIUM BROMIDE MONOHYDRATE
  15. AMLODIPINE [Concomitant]
     Active Substance: AMLODIPINE BESYLATE
  16. PROLIA [Concomitant]
     Active Substance: DENOSUMAB
  17. FLUBLOK [Concomitant]
     Active Substance: INFLUENZA A VIRUS A/CALIFORNIA/7/2009 (H1N1) RECOMBINANT HEMAGGLUTININ ANTIGEN\INFLUENZA A VIRUS A/VICTORIA/361/2011 (H3N2) RECOMBINANT HEMAGGLUTININ ANTIGEN\INFLUENZA B VIRUS B/WISCONSIN/1/2010 RECOMBINANT HEMAGGLUTININ ANTIGEN
  18. TYLENOL [Concomitant]
     Active Substance: ACETAMINOPHEN
  19. BUDESONIDE. [Concomitant]
     Active Substance: BUDESONIDE
  20. OXYGEN. [Concomitant]
     Active Substance: OXYGEN
  21. IBUPROFEN. [Concomitant]
     Active Substance: IBUPROFEN
  22. SODIUM CHLORIDE. [Concomitant]
     Active Substance: SODIUM CHLORIDE
  23. PREDNISONE. [Concomitant]
     Active Substance: PREDNISONE
  24. CELEXA [CELECOXIB] [Concomitant]
     Active Substance: CELECOXIB
  25. CLOBETASOL [Concomitant]
     Active Substance: CLOBETASOL
  26. MULTIVITAMINS [VITAMINS NOS] [Concomitant]
     Active Substance: VITAMINS

REACTIONS (2)
  - Chronic obstructive pulmonary disease [Unknown]
  - Hypertension [Unknown]
